FAERS Safety Report 15690031 (Version 1)
Quarter: 2018Q4

REPORT INFORMATION
  Report Type: Spontaneous
  Country: FR (occurrence: FR)
  Receive Date: 20181205
  Receipt Date: 20181205
  Transmission Date: 20190205
  Serious: Yes (Death)
  Sender: FDA-Public Use
  Company Number: FR-PFIZER INC-2018499214

PATIENT
  Age: 59 Year
  Sex: Male
  Weight: 75 kg

DRUGS (3)
  1. ARACYTINE [Concomitant]
     Active Substance: CYTARABINE
     Indication: LEUKAEMIA
     Dosage: UNK
     Route: 042
     Dates: start: 20181010, end: 20181011
  2. VESANOID [Suspect]
     Active Substance: TRETINOIN
     Indication: LEUKAEMIA
     Dosage: 20 MG, UNK
     Route: 048
     Dates: start: 20181008, end: 20181011
  3. ZAVEDOS [Suspect]
     Active Substance: IDARUBICIN
     Indication: LEUKAEMIA
     Dosage: UNK
     Route: 042
     Dates: start: 20181010, end: 20181010

REACTIONS (1)
  - Ventricular fibrillation [Fatal]

NARRATIVE: CASE EVENT DATE: 20181011
